FAERS Safety Report 13574789 (Version 1)
Quarter: 2017Q2

REPORT INFORMATION
  Report Type: Report from Study
  Country: KR (occurrence: KR)
  Receive Date: 20170523
  Receipt Date: 20170523
  Transmission Date: 20170830
  Serious: Yes (Hospitalization, Other)
  Sender: FDA-Public Use
  Company Number: KR-GILEAD-2017-0266903

PATIENT
  Sex: Female
  Weight: 63 kg

DRUGS (14)
  1. ENAFON [Concomitant]
     Indication: MAJOR DEPRESSION
  2. TACENOL [Concomitant]
     Indication: HEADACHE
  3. RELVAR ELLIPTA [Concomitant]
     Active Substance: FLUTICASONE FUROATE\VILANTEROL TRIFENATATE
     Indication: ASTHMA
  4. RIZE                               /00624801/ [Concomitant]
     Active Substance: CLOTIAZEPAM
     Indication: MAJOR DEPRESSION
  5. URSA [Concomitant]
     Indication: CHRONIC HEPATITIS C
     Dosage: UNK
     Dates: start: 20161031, end: 201701
  6. LEGALON [Concomitant]
     Active Substance: MILK THISTLE
     Indication: CHRONIC HEPATITIS C
     Dosage: UNK
     Dates: start: 20161031, end: 201701
  7. NEXIUM [Concomitant]
     Active Substance: ESOMEPRAZOLE MAGNESIUM
     Indication: PROPHYLAXIS AGAINST GASTROINTESTINAL ULCER
     Dosage: UNK
     Dates: start: 20170313, end: 20170318
  8. SOFOSBUVIR [Suspect]
     Active Substance: SOFOSBUVIR
     Indication: CHRONIC HEPATITIS C
     Dosage: 400 MG, QD
     Route: 048
     Dates: start: 20170202
  9. DAKLINZA [Concomitant]
     Active Substance: DACLATASVIR
     Indication: CHRONIC HEPATITIS C
     Dosage: 1 DF, QD
     Route: 048
     Dates: start: 20170202
  10. JANUMET [Concomitant]
     Active Substance: METFORMIN HYDROCHLORIDE\SITAGLIPTIN PHOSPHATE
     Indication: DIABETES MELLITUS
     Dosage: UNK
     Dates: start: 20170313, end: 20170321
  11. ZEMIMET [Concomitant]
     Indication: DIABETES MELLITUS
  12. ACLOVA                             /00587301/ [Concomitant]
     Indication: ANTIVIRAL PROPHYLAXIS
     Dosage: UNK
     Dates: start: 20170311, end: 20170313
  13. CODIORTAN [Concomitant]
     Indication: HYPERTENSION
  14. NISTATIN [Concomitant]
     Active Substance: NYSTATIN
     Indication: DIABETES MELLITUS

REACTIONS (1)
  - VIth nerve paralysis [Not Recovered/Not Resolved]

NARRATIVE: CASE EVENT DATE: 20170306
